FAERS Safety Report 6434778-2 (Version None)
Quarter: 2009Q4

REPORT INFORMATION
  Report Type: 
  Country: None (occurrence: None)
  Receive Date: 20091110
  Receipt Date: 20091029
  Transmission Date: 20100525
  Serious: Yes (Other)
  Sender: FDA-Public Use
  Company Number: SG-PFIZER INC-2009290775

PATIENT
  Age: 57 Year
  Sex: Female

DRUGS (1)
  1. GLIPIZIDE [Suspect]

REACTIONS (1)
  - HYPOGLYCAEMIA [None]
